FAERS Safety Report 15452204 (Version 1)
Quarter: 2018Q4

REPORT INFORMATION
  Report Type: Spontaneous
  Country: NL (occurrence: NL)
  Receive Date: 20181001
  Receipt Date: 20181001
  Transmission Date: 20190204
  Serious: Yes (Hospitalization, Other)
  Sender: FDA-Public Use
  Company Number: NL-APOTEX-2018AP021449

PATIENT
  Age: 61 Year
  Sex: Female

DRUGS (6)
  1. FLUOXETINE [Suspect]
     Active Substance: FLUOXETINE HYDROCHLORIDE
     Indication: INTENTIONAL OVERDOSE
     Dosage: 139 DF, UNK
     Route: 048
  2. CLEMASTINE [Suspect]
     Active Substance: CLEMASTINE
     Indication: INTENTIONAL OVERDOSE
     Dosage: 5 DF, UNK
     Route: 065
  3. NAPROXEN NA [Suspect]
     Active Substance: NAPROXEN SODIUM
     Indication: INTENTIONAL OVERDOSE
     Dosage: 20 DF, UNK
     Route: 065
  4. BROMAZEPAM [Suspect]
     Active Substance: BROMAZEPAM
     Indication: INTENTIONAL OVERDOSE
     Dosage: 90 DF, UNK
     Route: 065
  5. RISPERIDONE. [Suspect]
     Active Substance: RISPERIDONE
     Indication: INTENTIONAL OVERDOSE
     Dosage: 6 DF, UNK
     Route: 065
  6. ZOLPIDEM [Suspect]
     Active Substance: ZOLPIDEM\ZOLPIDEM TARTRATE
     Indication: INTENTIONAL OVERDOSE
     Dosage: 40 DF, UNK
     Route: 065

REACTIONS (9)
  - Toxicity to various agents [Unknown]
  - Torsade de pointes [Recovered/Resolved]
  - Muscular weakness [Unknown]
  - Electrocardiogram QT prolonged [Recovered/Resolved]
  - Fall [Unknown]
  - Somnolence [Unknown]
  - Intentional overdose [Unknown]
  - Coordination abnormal [Unknown]
  - Circulatory collapse [Recovered/Resolved]
